FAERS Safety Report 8946859 (Version 2)
Quarter: 2013Q1

REPORT INFORMATION
  Report Type: Spontaneous
  Country: BR (occurrence: BR)
  Receive Date: 20121205
  Receipt Date: 20130205
  Transmission Date: 20140127
  Serious: Yes (Hospitalization)
  Sender: FDA-Public Use
  Company Number: BR-GLAXOSMITHKLINE-A1003954A

PATIENT
  Age: 33 Year
  Sex: Female
  Weight: 62 kg

DRUGS (5)
  1. CLINDOXYL [Suspect]
     Indication: ACNE
     Route: 061
     Dates: start: 20121125, end: 20121126
  2. EPISOL [Suspect]
     Indication: PRODUCT USED FOR UNKNOWN INDICATION
     Route: 061
     Dates: start: 20121126
  3. OMEPRAMIX [Suspect]
     Indication: PRODUCT USED FOR UNKNOWN INDICATION
     Dosage: 4TAB TWICE PER DAY
     Route: 048
     Dates: start: 20121124, end: 20121126
  4. UNSPECIFIED MEDICATION [Concomitant]
     Indication: HELICOBACTER INFECTION
  5. DIURETICS [Concomitant]

REACTIONS (6)
  - Laryngeal oedema [Recovered/Resolved]
  - Erythema [Recovering/Resolving]
  - Face oedema [Recovering/Resolving]
  - Pruritus [Recovering/Resolving]
  - Dysphonia [Not Recovered/Not Resolved]
  - Urticaria [Unknown]
